FAERS Safety Report 7321622-4 (Version None)
Quarter: 2011Q1

REPORT INFORMATION
  Report Type: 
  Country: None (occurrence: None)
  Receive Date: 20110228
  Receipt Date: 20100908
  Transmission Date: 20110831
  Serious: No
  Sender: FDA-Public Use
  Company Number: A0880564A

PATIENT
  Age: 61 Year
  Sex: Female

DRUGS (3)
  1. SYNTHROID [Concomitant]
  2. MIRALAX [Concomitant]
  3. VALTREX [Suspect]
     Dosage: 1G PER DAY
     Route: 048
     Dates: start: 20100420, end: 20100503

REACTIONS (3)
  - MUSCULOSKELETAL CHEST PAIN [None]
  - NECK PAIN [None]
  - MYOSITIS [None]
